FAERS Safety Report 16924471 (Version 2)
Quarter: 2020Q1

REPORT INFORMATION
  Report Type: Spontaneous
  Country: GB (occurrence: GB)
  Receive Date: 20191016
  Receipt Date: 20200121
  Transmission Date: 20200409
  Serious: Yes (Other)
  Sender: FDA-Public Use
  Company Number: GB-PFIZER INC-2019442621

PATIENT
  Sex: Female

DRUGS (3)
  1. VENLAFAXINE HCL [Suspect]
     Active Substance: VENLAFAXINE HYDROCHLORIDE
     Dosage: UNK
  2. PROPRANOLOL HYDROCHLORIDE. [Suspect]
     Active Substance: PROPRANOLOL HYDROCHLORIDE
     Dosage: UNK
  3. ZISPIN SOLTAB [Suspect]
     Active Substance: MIRTAZAPINE
     Dosage: UNK
     Route: 048

REACTIONS (1)
  - Retinal detachment [Unknown]
